FAERS Safety Report 4277474-2 (Version None)
Quarter: 2004Q1

REPORT INFORMATION
  Report Type: 
  Country: None (occurrence: None)
  Receive Date: 20040122
  Receipt Date: 20030722
  Transmission Date: 20041129
  Serious: Yes (Hospitalization)
  Sender: FDA-Public Use
  Company Number: WAES 0307USA02639

PATIENT
  Sex: Female

DRUGS (2)
  1. VIOXX [Suspect]
     Route: 048
     Dates: start: 20021201
  2. VITAMINS (UNSPECIFIED) [Concomitant]

REACTIONS (1)
  - CEREBROVASCULAR ACCIDENT [None]
